FAERS Safety Report 9957507 (Version 1)
Quarter: 2014Q1

REPORT INFORMATION
  Report Type: Report from Study
  Country: US (occurrence: US)
  Receive Date: 20140304
  Receipt Date: 20140304
  Transmission Date: 20141002
  Serious: No
  Sender: FDA-Public Use
  Company Number: US-ABBVIE-13P-163-1092856-00

PATIENT
  Age: 70 Year
  Sex: Female

DRUGS (24)
  1. HUMIRA [Suspect]
     Indication: CROHN^S DISEASE
     Route: 058
     Dates: start: 20130515, end: 20130515
  2. HUMIRA [Suspect]
     Route: 058
  3. POTASSIUM CITRATE [Concomitant]
     Indication: BLOOD POTASSIUM DECREASED
  4. REQUIP [Concomitant]
     Indication: RESTLESS LEGS SYNDROME
  5. CYMBALTA [Concomitant]
     Indication: ANXIETY
     Dosage: 30 MG IN AM AND 60 MG IN PM
  6. CYMBALTA [Concomitant]
     Indication: ARTHRITIS
  7. SINGULAIR [Concomitant]
     Indication: HYPERSENSITIVITY
  8. CELEBREX [Concomitant]
     Indication: ARTHRITIS
  9. ALPRAZOLAM [Concomitant]
     Dosage: AT BEDTIME
  10. NEURONTIN [Concomitant]
     Indication: NEUROPATHY PERIPHERAL
     Dosage: AT BEDTIME
  11. WELCHOL [Concomitant]
     Indication: DIARRHOEA
  12. BEELITH [Concomitant]
     Indication: NEPHROLITHIASIS
  13. PRILOSEC [Concomitant]
     Indication: GASTRIC DISORDER
  14. DONNATAL [Concomitant]
     Indication: ABDOMINAL PAIN UPPER
     Dosage: TWICE DAILY AS NEEDED
  15. ASACOL [Concomitant]
     Indication: CROHN^S DISEASE
  16. IMURAN [Concomitant]
     Indication: CROHN^S DISEASE
  17. COREG [Concomitant]
     Indication: HYPERTENSION
  18. NORVASC [Concomitant]
     Indication: HYPERTENSION
  19. HYDROCHLOROTHIAZIDE [Concomitant]
     Indication: HYPERTENSION
  20. LISINOPRIL [Concomitant]
     Indication: HYPERTENSION
  21. CELEXA [Concomitant]
     Indication: ANXIETY
  22. LOSARTAN [Concomitant]
     Indication: HYPERTENSION
  23. ATIVAN [Concomitant]
     Indication: ANXIETY
  24. LEVOTHYROXINE [Concomitant]
     Indication: HYPOTHYROIDISM

REACTIONS (2)
  - Injection site pain [Not Recovered/Not Resolved]
  - Injection site haemorrhage [Not Recovered/Not Resolved]
